FAERS Safety Report 13908470 (Version 1)
Quarter: 2017Q3

REPORT INFORMATION
  Report Type: Spontaneous
  Country: GB (occurrence: GB)
  Receive Date: 20170826
  Receipt Date: 20170826
  Transmission Date: 20171127
  Serious: Yes (Other)
  Sender: FDA-Public Use
  Company Number: GB-MYLANLABS-2017M1052019

PATIENT

DRUGS (39)
  1. BISOPROLOL [Concomitant]
     Active Substance: BISOPROLOL
     Dates: start: 20170228
  2. CALCICHEW [Concomitant]
     Active Substance: CALCIUM CARBONATE
     Dates: start: 20170228, end: 20170804
  3. FOLIC ACID. [Concomitant]
     Active Substance: FOLIC ACID
     Dates: start: 20170228
  4. HYDRALAZINE [Concomitant]
     Active Substance: HYDRALAZINE HYDROCHLORIDE
     Dates: start: 20170228
  5. SERTRALINE [Concomitant]
     Active Substance: SERTRALINE HYDROCHLORIDE
     Dosage: EACH MORNING
     Dates: start: 20170804
  6. CIPROFLOXACIN. [Suspect]
     Active Substance: CIPROFLOXACIN
     Indication: PRODUCT USED FOR UNKNOWN INDICATION
     Dates: start: 20170804
  7. CLOBETASOL PROPIONATE. [Concomitant]
     Active Substance: CLOBETASOL PROPIONATE
     Dates: start: 20140213, end: 20170804
  8. PARACETAMOL [Concomitant]
     Active Substance: ACETAMINOPHEN
     Dosage: TAKE 1 OR 2 4 TIMES/DAY.
     Dates: start: 20170228
  9. ALPHOSYL [Concomitant]
     Dosage: 1 DF, UNK
     Dates: start: 20170228, end: 20170804
  10. AMITRIPTYLINE HYDROCHLORIDE. [Concomitant]
     Active Substance: AMITRIPTYLINE HYDROCHLORIDE
     Dosage: AT NIGHT.
     Dates: start: 20170228, end: 20170804
  11. GLYCERYL TRINITRATE [Concomitant]
     Active Substance: NITROGLYCERIN
     Dosage: SPRAY ONE PUFF UNDER THE TONGUE WHEN REQUIRED. ...
     Route: 060
     Dates: start: 20170804
  12. HUMALOG [Concomitant]
     Active Substance: INSULIN LISPRO
     Dosage: 14 UNITS WITH LUNCH AND 14 UNITS WITH DINNER.
     Dates: start: 20170228, end: 20170804
  13. NEORECORMON [Concomitant]
     Active Substance: ERYTHROPOIETIN
     Dosage: TUESDAY/THURSDAY/SATURDAY WITH DIALYSIS.
     Dates: start: 20170804
  14. ACIDEX                             /01521901/ [Concomitant]
     Active Substance: CALCIUM CARBONATE\SODIUM ALGINATE\SODIUM BICARBONATE
     Dosage: 4 TIMES/DAY
     Dates: start: 20170804
  15. ABASAGLAR [Concomitant]
     Active Substance: INSULIN GLARGINE
     Dosage: IN THE MORNING.
     Dates: start: 20170228
  16. AZATHIOPRINE. [Concomitant]
     Active Substance: AZATHIOPRINE
     Dates: start: 20170228, end: 20170804
  17. CLOPIDOGREL [Concomitant]
     Active Substance: CLOPIDOGREL BISULFATE
     Dates: start: 20170804
  18. LACTULOSE. [Concomitant]
     Active Substance: LACTULOSE
     Dates: start: 20170801
  19. SEVELAMER [Concomitant]
     Active Substance: SEVELAMER
     Dosage: 2TDS
     Dates: start: 20170804
  20. TORASEMIDE [Concomitant]
     Active Substance: TORSEMIDE
     Dosage: IN THE MORNING.
     Dates: start: 20170228, end: 20170804
  21. WARFARIN SODIUM. [Concomitant]
     Active Substance: WARFARIN SODIUM
     Dosage: TAKE AS DIRECTED IN YELLOW BOOK.
     Dates: start: 20170228, end: 20170804
  22. ALFACALCIDOL [Concomitant]
     Active Substance: ALFACALCIDOL
     Dates: start: 20170228
  23. FOSTAIR [Concomitant]
     Active Substance: BECLOMETHASONE\FORMOTEROL
     Dates: start: 20170228
  24. HYDROXYCARBAMIDE [Concomitant]
     Active Substance: HYDROXYUREA
     Dates: start: 20170228, end: 20170804
  25. LANSOPRAZOLE. [Concomitant]
     Active Substance: LANSOPRAZOLE
     Dates: start: 20170228
  26. PREGABALIN. [Concomitant]
     Active Substance: PREGABALIN
     Dosage: AT NIGHT
     Dates: start: 20170804
  27. BRALTUS [Concomitant]
     Route: 055
     Dates: start: 20170804
  28. LAXIDO [Concomitant]
     Active Substance: POLYETHYLENE GLYCOL 3350\POTASSIUM CHLORIDE\SODIUM BICARBONATE\SODIUM CHLORIDE
     Dosage: TAKE ONE TWICE A DAY
     Dates: start: 20170804
  29. TIOTROPIUM [Concomitant]
     Active Substance: TIOTROPIUM
     Route: 055
     Dates: start: 20170228, end: 20170804
  30. CHEMYDUR [Concomitant]
     Dosage: 2AM.
     Dates: start: 20170228, end: 20170804
  31. FENTANYL. [Concomitant]
     Active Substance: FENTANYL
     Dosage: PATCH
     Dates: start: 20170804
  32. IRBESARTAN. [Concomitant]
     Active Substance: IRBESARTAN
     Dates: start: 20170228
  33. AMLODIPINE [Concomitant]
     Active Substance: AMLODIPINE BESYLATE
     Indication: ILL-DEFINED DISORDER
     Dates: start: 20170228
  34. ATORVASTATIN [Concomitant]
     Active Substance: ATORVASTATIN
     Dates: start: 20170228
  35. CETOMACROGOL [Concomitant]
     Active Substance: COSMETICS
     Dosage: AS DIRECTED.
     Dates: start: 20170804
  36. DOCUSATE SODIUM. [Concomitant]
     Active Substance: DOCUSATE SODIUM
     Dates: start: 20170804
  37. DOXAZOSIN [Concomitant]
     Active Substance: DOXAZOSIN\DOXAZOSIN MESYLATE
     Dates: start: 20170228
  38. SENNA                              /00142201/ [Concomitant]
     Active Substance: SENNA LEAF
     Dosage: TWICE DAILY.
     Dates: start: 20170228
  39. SODIUM BICARBONATE. [Concomitant]
     Active Substance: SODIUM BICARBONATE
     Dates: start: 20170228, end: 20170804

REACTIONS (1)
  - Dermatitis bullous [Recovered/Resolved]

NARRATIVE: CASE EVENT DATE: 20170804
